FAERS Safety Report 23896939 (Version 4)
Quarter: 2025Q4

REPORT INFORMATION
  Report Type: Spontaneous
  Country: US (occurrence: US)
  Receive Date: 20240524
  Receipt Date: 20251020
  Transmission Date: 20260118
  Serious: Yes (Hospitalization, Other)
  Sender: PFIZER
  Company Number: US-MLMSERVICE-20240513-PI058242-00270-1

PATIENT
  Age: 19 Year
  Sex: Female

DRUGS (5)
  1. METHYLPREDNISOLONE SODIUM SUCCINATE [Suspect]
     Active Substance: METHYLPREDNISOLONE SODIUM SUCCINATE
     Indication: Neurological symptom
     Dosage: 30 MG/KG
     Route: 040
  2. METHYLPREDNISOLONE SODIUM SUCCINATE [Suspect]
     Active Substance: METHYLPREDNISOLONE SODIUM SUCCINATE
     Dosage: 5.4 MG/KG (OVER THE FOLLOWING 23 HOURS AFTER BOLUS
     Route: 041
  3. PHENYLEPHRINE [Concomitant]
     Active Substance: PHENYLEPHRINE
     Indication: Postoperative care
     Dosage: UNK (DOSE RANGE OF 0.08-1.5 MCG/KG/MIN, INFUSION)
     Route: 041
  4. PHENYLEPHRINE [Concomitant]
     Active Substance: PHENYLEPHRINE
     Indication: Mean arterial pressure
  5. LACTATED RINGERS SOLUTION [Concomitant]
     Active Substance: CALCIUM CHLORIDE\POTASSIUM CHLORIDE\SODIUM CHLORIDE\SODIUM LACTATE
     Indication: Resuscitation
     Dosage: 80 ML/KG (IN THE FIRST 24 HOURS)
     Route: 042

REACTIONS (2)
  - Hyperlactacidaemia [Recovered/Resolved]
  - Lactic acidosis [Recovered/Resolved]
